FAERS Safety Report 5493754-7 (Version None)
Quarter: 2007Q4

REPORT INFORMATION
  Report Type: 
  Country: None (occurrence: None)
  Receive Date: 20071023
  Receipt Date: 20071016
  Transmission Date: 20080405
  Serious: Yes (Death, Hospitalization)
  Sender: FDA-Public Use
  Company Number: US-ROXANE LABORATORIES, INC-2007-BP-22772RO

PATIENT
  Age: 24 Year
  Sex: Male

DRUGS (11)
  1. PREDNISONE [Suspect]
     Indication: IMMUNOSUPPRESSION
     Dates: start: 20020801
  2. TACROLIMUS [Suspect]
     Indication: IMMUNOSUPPRESSION
     Dates: start: 20020801
  3. MYCOPHENOLATE MOFETIL [Suspect]
     Indication: IMMUNOSUPPRESSION
     Dates: start: 20020801
  4. SIROLIMUS [Suspect]
     Indication: IMMUNOSUPPRESSION
     Dates: start: 20020801
  5. DACLIZUMAB [Suspect]
     Indication: IMMUNOSUPPRESSION
  6. LINEZOLID [Concomitant]
     Route: 042
     Dates: start: 20030301
  7. VALGANCICLOVIR HCL [Concomitant]
     Indication: CYTOMEGALOVIRUS COLITIS
  8. TPN [Concomitant]
     Route: 042
  9. DIURETICS [Concomitant]
  10. ACYCLOVIR [Concomitant]
     Indication: HERPES DERMATITIS
  11. FLUCONAZOLE [Concomitant]
     Indication: FUNGAEMIA

REACTIONS (12)
  - CYTOMEGALOVIRUS COLITIS [None]
  - ENDOCARDITIS [None]
  - ENTEROCOCCAL SEPSIS [None]
  - EPSTEIN-BARR VIRUS INFECTION [None]
  - HERPES DERMATITIS [None]
  - LEIOMYOSARCOMA [None]
  - MULTI-ORGAN FAILURE [None]
  - PANCYTOPENIA [None]
  - PORTAL HYPERTENSION [None]
  - RENAL FAILURE [None]
  - RESPIRATORY FAILURE [None]
  - SPLENOMEGALY [None]
